FAERS Safety Report 10267078 (Version 1)
Quarter: 2014Q2

REPORT INFORMATION
  Report Type: Spontaneous
  Country: US (occurrence: None)
  Receive Date: 20140625
  Receipt Date: 20140625
  Transmission Date: 20141212
  Serious: Yes (Disabling, Other)
  Sender: FDA-Public Use
  Company Number: None

PATIENT
  Age: 60 Year
  Sex: Male
  Weight: 116.12 kg

DRUGS (1)
  1. SOVALDI 400MG GILEAD SCIENCES [Suspect]
     Indication: HEPATITIS C
     Dosage: 1 PILL DAILY DAILY FOR 16 WEEKS ORAL
     Route: 048
     Dates: start: 20140429, end: 20140624

REACTIONS (4)
  - Malaise [None]
  - Drug ineffective [None]
  - Product quality issue [None]
  - Adverse drug reaction [None]
